FAERS Safety Report 24426106 (Version 1)
Quarter: 2024Q4

REPORT INFORMATION
  Report Type: Spontaneous
  Country: US (occurrence: US)
  Receive Date: 20241011
  Receipt Date: 20241011
  Transmission Date: 20250115
  Serious: No
  Sender: ALEXION PHARMACEUTICALS
  Company Number: US-AstraZeneca-CH-00716470A

PATIENT

DRUGS (4)
  1. BYETTA [Suspect]
     Active Substance: EXENATIDE
     Route: 065
  2. BYETTA [Suspect]
     Active Substance: EXENATIDE
  3. BYETTA [Suspect]
     Active Substance: EXENATIDE
     Route: 065
  4. BYETTA [Suspect]
     Active Substance: EXENATIDE

REACTIONS (1)
  - Oxygen therapy [Unknown]
